FAERS Safety Report 25914306 (Version 1)
Quarter: 2025Q4

REPORT INFORMATION
  Report Type: Report from Study
  Country: EU (occurrence: EU)
  Receive Date: 20251013
  Receipt Date: 20251013
  Transmission Date: 20260117
  Serious: Yes (Death, Other)
  Sender: ROCHE
  Company Number: EU-ROCHE-10000409145

PATIENT

DRUGS (8)
  1. RITUXIMAB [Suspect]
     Active Substance: RITUXIMAB
     Indication: Autoimmune disorder
     Route: 065
  2. TOCILIZUMAB [Suspect]
     Active Substance: TOCILIZUMAB
     Indication: Autoimmune disorder
     Route: 058
  3. MYCOPHENOLATE MOFETIL [Suspect]
     Active Substance: MYCOPHENOLATE MOFETIL
     Indication: Autoimmune disorder
     Route: 048
  4. CYCLOPHOSPHAMIDE [Suspect]
     Active Substance: CYCLOPHOSPHAMIDE
     Indication: Autoimmune disorder
     Route: 065
  5. ECULIZUMAB [Suspect]
     Active Substance: ECULIZUMAB
     Indication: Autoimmune disorder
     Route: 065
  6. METHOTREXATE [Suspect]
     Active Substance: METHOTREXATE
     Indication: Autoimmune disorder
     Route: 065
  7. IMURAN [Suspect]
     Active Substance: AZATHIOPRINE
     Indication: Autoimmune disorder
     Route: 065
  8. HYDROXYCHLOROQUINE DIPHOSPHATE [Suspect]
     Active Substance: HYDROXYCHLOROQUINE DIPHOSPHATE
     Indication: Autoimmune disorder
     Route: 065

REACTIONS (24)
  - Cerebrovascular accident [Unknown]
  - Hypotension [Unknown]
  - Hypersensitivity [Unknown]
  - Anaemia [Unknown]
  - Peripheral artery aneurysm [Unknown]
  - Deep vein thrombosis [Unknown]
  - Headache [Unknown]
  - Nausea [Unknown]
  - Vomiting [Unknown]
  - Hypocalcaemia [Unknown]
  - Hypofibrinogenaemia [Unknown]
  - Hypokalaemia [Unknown]
  - Pneumothorax [Unknown]
  - Pancreatitis [Unknown]
  - Syncope [Unknown]
  - Dizziness [Unknown]
  - Cardiac failure [Unknown]
  - Tachycardia [Unknown]
  - Haematoma [Unknown]
  - Infection [Unknown]
  - Septic shock [Fatal]
  - Cardiac arrest [Unknown]
  - Retroperitoneal haematoma [Unknown]
  - COVID-19 [Unknown]
